FAERS Safety Report 8168319-9 (Version None)
Quarter: 2012Q1

REPORT INFORMATION
  Report Type: 
  Country: None (occurrence: None)
  Receive Date: 20120227
  Receipt Date: 20120215
  Transmission Date: 20120608
  Serious: Yes (Hospitalization, Other)
  Sender: FDA-Public Use
  Company Number: US-MERCK-1108USA02947

PATIENT
  Age: 62 Year
  Sex: Female
  Weight: 58 kg

DRUGS (15)
  1. FOSAMAX [Suspect]
     Indication: OSTEOPENIA
     Route: 048
     Dates: start: 19990603, end: 20050601
  2. CALCIUM CITRATE [Concomitant]
     Indication: OSTEOPENIA
     Route: 065
     Dates: start: 19990101
  3. FOSAMAX [Suspect]
     Route: 048
     Dates: start: 19990707
  4. AMITRIPTYLINE HYDROCHLORIDE [Concomitant]
     Indication: CYSTITIS INTERSTITIAL
     Route: 065
     Dates: start: 19870101
  5. VITAMINS (UNSPECIFIED) [Concomitant]
     Route: 065
     Dates: start: 19810101
  6. FOSAMAX [Suspect]
     Route: 048
     Dates: start: 19980101
  7. LISINOPRIL [Concomitant]
     Indication: HYPERTENSION
     Route: 065
     Dates: start: 19940101
  8. OMEGA-3 MARINE TRIGLYCERIDES [Concomitant]
     Route: 065
     Dates: start: 19990101
  9. VITAMIN E [Concomitant]
     Route: 065
     Dates: start: 19990101
  10. ELMIRON [Concomitant]
     Indication: CYSTITIS INTERSTITIAL
     Dosage: 3 PER DAY
     Route: 065
     Dates: start: 19870101
  11. CHONDROITIN SULFATE SODIUM AND GLUCOSAMINE SULFATE [Concomitant]
     Indication: ARTHROPATHY
     Route: 065
     Dates: start: 19990101
  12. FOSAMAX [Suspect]
     Route: 048
     Dates: start: 20001001
  13. SYNTHROID [Concomitant]
     Indication: THYROID DISORDER
     Dosage: .75
     Route: 065
     Dates: start: 19820101
  14. VITAMIN B COMPLEX [Concomitant]
     Route: 065
     Dates: start: 19990101
  15. FOSAMAX [Suspect]
     Route: 048
     Dates: start: 20041117

REACTIONS (41)
  - CEREBROVASCULAR ACCIDENT [None]
  - ARTHRITIS [None]
  - DYSPNOEA [None]
  - DIZZINESS [None]
  - TOOTH DISORDER [None]
  - RASH [None]
  - FRACTURE NONUNION [None]
  - SQUAMOUS CELL CARCINOMA [None]
  - CYST [None]
  - DRUG INEFFECTIVE [None]
  - DRY EYE [None]
  - DYSPEPSIA [None]
  - GASTROOESOPHAGEAL REFLUX DISEASE [None]
  - BACK PAIN [None]
  - BLOOD CHOLESTEROL INCREASED [None]
  - DEPRESSION [None]
  - SCIATICA [None]
  - ARTHRALGIA [None]
  - OSTEOARTHRITIS [None]
  - DERMATITIS ALLERGIC [None]
  - THYROID NEOPLASM [None]
  - BURSITIS [None]
  - EPICONDYLITIS [None]
  - DYSPHAGIA [None]
  - FEMUR FRACTURE [None]
  - PAIN IN EXTREMITY [None]
  - TENDONITIS [None]
  - DIVERTICULUM INTESTINAL [None]
  - MELANOCYTIC NAEVUS [None]
  - INAPPROPRIATE SCHEDULE OF DRUG ADMINISTRATION [None]
  - ROTATOR CUFF SYNDROME [None]
  - ADVERSE DRUG REACTION [None]
  - OROPHARYNGEAL PAIN [None]
  - CUBITAL TUNNEL SYNDROME [None]
  - CARPAL TUNNEL SYNDROME [None]
  - NEURALGIA [None]
  - HEADACHE [None]
  - HAEMORRHOIDAL HAEMORRHAGE [None]
  - OVERDOSE [None]
  - ANXIETY [None]
  - VAGINITIS BACTERIAL [None]
